FAERS Safety Report 19637803 (Version 1)
Quarter: 2021Q3

REPORT INFORMATION
  Report Type: Spontaneous
  Country: CA (occurrence: CA)
  Receive Date: 20210730
  Receipt Date: 20210730
  Transmission Date: 20211014
  Serious: Yes (Death, Hospitalization)
  Sender: FDA-Public Use
  Company Number: CA-PFIZER INC-2021901132

PATIENT
  Age: 78 Year
  Sex: Female

DRUGS (10)
  1. CANDESARTAN. [Concomitant]
     Active Substance: CANDESARTAN
  2. CHLORTHALIDONE. [Concomitant]
     Active Substance: CHLORTHALIDONE
  3. LEVOTHYROXINE. [Concomitant]
     Active Substance: LEVOTHYROXINE
  4. METHOTREXATE SODIUM. [Suspect]
     Active Substance: METHOTREXATE SODIUM
     Dosage: UNK, WEEKLY
  5. CELECOXIB. [Concomitant]
     Active Substance: CELECOXIB
  6. HYDROCHLOROTHIAZIDE. [Concomitant]
     Active Substance: HYDROCHLOROTHIAZIDE
  7. ROSUVASTATIN. [Concomitant]
     Active Substance: ROSUVASTATIN
     Route: 058
  8. ZOPICLONE [Concomitant]
     Active Substance: ZOPICLONE
  9. CICLESONIDE [Concomitant]
     Active Substance: CICLESONIDE
  10. FLUVOXAMINE [Concomitant]
     Active Substance: FLUVOXAMINE

REACTIONS (11)
  - Dyspnoea [Fatal]
  - Pulmonary toxicity [Fatal]
  - Malaise [Fatal]
  - Weight decreased [Fatal]
  - Diffuse alveolar damage [Fatal]
  - Alveolitis [Fatal]
  - Dyspnoea exertional [Fatal]
  - Decreased appetite [Fatal]
  - Fatigue [Fatal]
  - Lung infiltration [Fatal]
  - Cough [Fatal]
